FAERS Safety Report 14194527 (Version 2)
Quarter: 2017Q4

REPORT INFORMATION
  Report Type: Spontaneous
  Country: PT (occurrence: PT)
  Receive Date: 20171116
  Receipt Date: 20171204
  Transmission Date: 20180321
  Serious: Yes (Other)
  Sender: FDA-Public Use
  Company Number: PT-AUROBINDO-AUR-APL-2017-43547

PATIENT
  Age: 81 Year
  Sex: Male

DRUGS (2)
  1. RIVAROXABAN [Concomitant]
     Active Substance: RIVAROXABAN
     Indication: ATRIAL FIBRILLATION
     Route: 065
  2. AMIODARONE [Suspect]
     Active Substance: AMIODARONE
     Indication: ATRIAL FIBRILLATION
     Route: 065

REACTIONS (12)
  - Pulmonary toxicity [Unknown]
  - Acute respiratory failure [Unknown]
  - Brain natriuretic peptide increased [Unknown]
  - Orthopnoea [Unknown]
  - Dyspnoea [Unknown]
  - Weight decreased [Unknown]
  - C-reactive protein increased [Unknown]
  - Crepitations [Unknown]
  - Oedema peripheral [Unknown]
  - Interstitial lung disease [Unknown]
  - Fatigue [Unknown]
  - Hypoxia [Unknown]
